FAERS Safety Report 8268493-X (Version None)
Quarter: 2012Q2

REPORT INFORMATION
  Report Type: 
  Country: None (occurrence: None)
  Receive Date: 20120409
  Receipt Date: 20120405
  Transmission Date: 20120825
  Serious: Yes (Hospitalization, Other)
  Sender: FDA-Public Use
  Company Number: PHHY2012DE015495

PATIENT
  Sex: Male
  Weight: 88.1 kg

DRUGS (10)
  1. TASIGNA [Suspect]
     Indication: CHRONIC MYELOID LEUKAEMIA
     Dosage: 600 MG/DAY
     Route: 048
     Dates: start: 20111202
  2. METOPROLOL TARTRATE [Concomitant]
     Indication: HYPERTENSION
     Dosage: 47.5 MG,
  3. LITAREK [Concomitant]
     Indication: CHRONIC MYELOID LEUKAEMIA
     Dosage: 500 MG,
     Route: 048
     Dates: start: 20111101, end: 20111101
  4. AMLODIPINE [Concomitant]
     Dosage: 5 MG,
  5. PRAVASTATIN [Concomitant]
     Indication: HYPERCHOLESTEROLAEMIA
     Dosage: 20 MG,
  6. TASIGNA [Suspect]
     Dosage: 400 MG /DAY
     Route: 048
  7. OMEPRAZOLE [Concomitant]
     Dosage: 20 MG,
  8. ASPIRIN [Concomitant]
     Dosage: 100 MG,
  9. ACTRAPHANE [Concomitant]
     Indication: TYPE 2 DIABETES MELLITUS
     Dosage: 24 UKN, UNK
  10. ALLOPURINOL [Concomitant]

REACTIONS (3)
  - DYSPNOEA [None]
  - PNEUMONIA [None]
  - OEDEMA [None]
